FAERS Safety Report 5221304-9 (Version None)
Quarter: 2007Q1

REPORT INFORMATION
  Report Type: 
  Country: None (occurrence: None)
  Receive Date: 20070126
  Receipt Date: 20070118
  Transmission Date: 20070707
  Serious: Yes (Death, Hospitalization)
  Sender: FDA-Public Use
  Company Number: US-PFIZER INC-2006141585

PATIENT
  Sex: Female
  Weight: 80 kg

DRUGS (11)
  1. SUTENT [Suspect]
     Indication: BREAST CANCER
     Route: 048
     Dates: start: 20061019, end: 20061112
  2. METAMUCIL-2 [Concomitant]
  3. XANAX [Concomitant]
     Route: 048
     Dates: start: 20061016, end: 20061110
  4. ATIVAN [Concomitant]
     Route: 048
     Dates: start: 20061016, end: 20061110
  5. LYRICA [Concomitant]
     Route: 048
     Dates: start: 20061016, end: 20061110
  6. BIAFINE [Concomitant]
     Route: 048
     Dates: start: 20060906, end: 20061110
  7. SILVADENE [Concomitant]
     Route: 048
     Dates: start: 20060918, end: 20061110
  8. ZANTAC [Concomitant]
     Route: 048
     Dates: start: 20060601, end: 20061110
  9. PRILOSEC [Concomitant]
     Route: 048
     Dates: start: 20061103, end: 20061110
  10. XYLOCAINE [Concomitant]
     Route: 048
     Dates: start: 20061109, end: 20061110
  11. ADVIL [Concomitant]
     Route: 048
     Dates: start: 20060601, end: 20061110

REACTIONS (3)
  - BREAST CANCER [None]
  - DEPRESSED LEVEL OF CONSCIOUSNESS [None]
  - DISEASE PROGRESSION [None]
